FAERS Safety Report 6515614-2 (Version None)
Quarter: 2009Q4

REPORT INFORMATION
  Report Type: 
  Country: None (occurrence: None)
  Receive Date: 20091223
  Receipt Date: 20091215
  Transmission Date: 20100525
  Serious: Yes (Other)
  Sender: FDA-Public Use
  Company Number: IE-JNJFOC-20090300450

PATIENT
  Sex: Male

DRUGS (2)
  1. REMICADE [Suspect]
     Indication: COLITIS ULCERATIVE
     Route: 042
  2. ASACOLON [Concomitant]

REACTIONS (1)
  - PULMONARY TUBERCULOSIS [None]
